FAERS Safety Report 11180002 (Version 2)
Quarter: 2015Q3

REPORT INFORMATION
  Report Type: Spontaneous
  Country: US (occurrence: None)
  Receive Date: 20150609
  Receipt Date: 20150716
  Transmission Date: 20151125
  Serious: Yes (Other)
  Sender: FDA-Public Use
  Company Number: ABR_02236_2015

PATIENT
  Age: 50 Year
  Sex: Female

DRUGS (2)
  1. EDARBI [Suspect]
     Active Substance: AZILSARTAN KAMEDOXOMIL
     Indication: HYPERTENSION
     Dates: start: 20140902, end: 20140911
  2. EDARBYCLOR [Suspect]
     Active Substance: AZILSARTAN KAMEDOXOMIL\CHLORTHALIDONE
     Indication: PRODUCT USED FOR UNKNOWN INDICATION
     Dosage: (40/12.5)

REACTIONS (3)
  - Blood pressure inadequately controlled [None]
  - Renal failure [None]
  - Drug ineffective [None]

NARRATIVE: CASE EVENT DATE: 2014
